FAERS Safety Report 18058088 (Version 2)
Quarter: 2020Q3

REPORT INFORMATION
  Report Type: Spontaneous
  Country: BR (occurrence: BR)
  Receive Date: 20200723
  Receipt Date: 20200814
  Transmission Date: 20201103
  Serious: Yes (Other)
  Sender: FDA-Public Use
  Company Number: BR-TORRENT-00005392

PATIENT
  Age: 65 Year
  Sex: Female

DRUGS (3)
  1. OLMECOR [Suspect]
     Active Substance: OLMESARTAN MEDOXOMIL
     Indication: HYPERTENSION
     Dosage: ONE TABLET IN THE MORNING
     Route: 048
     Dates: start: 2019
  2. TORLOS [Suspect]
     Active Substance: LOSARTAN POTASSIUM
     Indication: HYPERTENSION
     Dosage: ONE TABLET IN THE MORNING AND IF BP RISE CAN TAKE ANOTHER HALF TABLET
     Route: 048
     Dates: end: 2019
  3. ROSUCOR [Suspect]
     Active Substance: ROSUVASTATIN CALCIUM
     Indication: DYSLIPIDAEMIA
     Dosage: ONE TABLET AT NIGHT AFTER DINNER
     Route: 048
     Dates: start: 201903

REACTIONS (4)
  - Self-medication [Unknown]
  - Dental necrosis [Recovered/Resolved]
  - Swelling face [Not Recovered/Not Resolved]
  - Lactose intolerance [Not Recovered/Not Resolved]

NARRATIVE: CASE EVENT DATE: 2012
